FAERS Safety Report 9753469 (Version 1)
Quarter: 2013Q4

REPORT INFORMATION
  Report Type: Spontaneous
  Country: US (occurrence: US)
  Receive Date: 20131213
  Receipt Date: 20131213
  Transmission Date: 20140711
  Serious: Yes (Other)
  Sender: FDA-Public Use
  Company Number: US-TEVA-403984USA

PATIENT
  Age: 27 Year
  Sex: Female
  Weight: 49.94 kg

DRUGS (1)
  1. PARAGARD 380A [Suspect]
     Indication: CONTRACEPTION
     Route: 015
     Dates: start: 20130329

REACTIONS (2)
  - Embedded device [Unknown]
  - Pelvic fluid collection [Unknown]
